FAERS Safety Report 15262217 (Version 3)
Quarter: 2018Q3

REPORT INFORMATION
  Report Type: Spontaneous
  Country: US (occurrence: US)
  Receive Date: 20180809
  Receipt Date: 20180823
  Transmission Date: 20181010
  Serious: No
  Sender: FDA-Public Use
  Company Number: US-UNITED THERAPEUTICS-UNT-2018-011178

PATIENT
  Sex: Female
  Weight: 58.96 kg

DRUGS (4)
  1. ALCOHOL. [Suspect]
     Active Substance: ALCOHOL
     Indication: PRODUCT USED FOR UNKNOWN INDICATION
     Route: 065
  2. LETAIRIS [Concomitant]
     Active Substance: AMBRISENTAN
     Indication: PRODUCT USED FOR UNKNOWN INDICATION
     Route: 065
  3. CHLORAPREP [Suspect]
     Active Substance: CHLORHEXIDINE GLUCONATE\ISOPROPYL ALCOHOL
     Indication: PRODUCT USED FOR UNKNOWN INDICATION
     Route: 065
  4. REMODULIN [Suspect]
     Active Substance: TREPROSTINIL
     Indication: PULMONARY ARTERIAL HYPERTENSION
     Dosage: 0.056 ?G/KG, CONTINUING
     Route: 041
     Dates: start: 20180426

REACTIONS (6)
  - Injection site pruritus [Unknown]
  - Dermatitis contact [Unknown]
  - Injection site erythema [Unknown]
  - Dyspnoea exertional [Not Recovered/Not Resolved]
  - Diarrhoea [Unknown]
  - Multiple chemical sensitivity [Unknown]

NARRATIVE: CASE EVENT DATE: 2018
